FAERS Safety Report 4728277-3 (Version None)
Quarter: 2005Q3

REPORT INFORMATION
  Report Type: 
  Country: None (occurrence: None)
  Receive Date: 20050727
  Receipt Date: 20050712
  Transmission Date: 20060218
  Serious: Yes (Other)
  Sender: FDA-Public Use
  Company Number: 2005093711

PATIENT
  Age: 70 Year
  Sex: Female

DRUGS (1)
  1. MACUGEN [Suspect]
     Indication: MACULAR DEGENERATION
     Dosage: INTRAVITREOUS
     Route: 031

REACTIONS (16)
  - CATARACT [None]
  - CHOROIDAL DETACHMENT [None]
  - CONDITION AGGRAVATED [None]
  - CORNEAL OEDEMA [None]
  - CULTURE POSITIVE [None]
  - ENDOPHTHALMITIS [None]
  - EYE DISCHARGE [None]
  - EYE IRRITATION [None]
  - EYE PAIN [None]
  - LACRIMATION INCREASED [None]
  - RETINAL DETACHMENT [None]
  - RETINAL HAEMORRHAGE [None]
  - STAPHYLOCOCCAL INFECTION [None]
  - VISUAL ACUITY REDUCED [None]
  - VISUAL DISTURBANCE [None]
  - VITREOUS HAEMORRHAGE [None]
